FAERS Safety Report 18218688 (Version 1)
Quarter: 2020Q3

REPORT INFORMATION
  Report Type: Report from Study
  Country: AU (occurrence: AU)
  Receive Date: 20200901
  Receipt Date: 20200901
  Transmission Date: 20201103
  Serious: Yes (Other)
  Sender: FDA-Public Use
  Company Number: AU-JNJFOC-20190914731

PATIENT
  Age: 27 Year
  Sex: Female
  Weight: 74 kg

DRUGS (5)
  1. BUDESONIDE. [Concomitant]
     Active Substance: BUDESONIDE
     Indication: PRODUCT USED FOR UNKNOWN INDICATION
     Route: 065
  2. REMICADE [Suspect]
     Active Substance: INFLIXIMAB
     Indication: CROHN^S DISEASE
     Route: 042
     Dates: start: 20190717
  3. REMICADE [Suspect]
     Active Substance: INFLIXIMAB
     Route: 042
     Dates: start: 20191230, end: 20191230
  4. VITAMIN B12 [Concomitant]
     Active Substance: CYANOCOBALAMIN
     Indication: PERNICIOUS ANAEMIA
     Route: 065
  5. PENTASA [Concomitant]
     Active Substance: MESALAMINE
     Indication: CROHN^S DISEASE
     Route: 065

REACTIONS (3)
  - Crohn^s disease [Not Recovered/Not Resolved]
  - Intestinal pseudo-obstruction [Recovered/Resolved]
  - Intestinal resection [Recovered/Resolved]

NARRATIVE: CASE EVENT DATE: 2019
